FAERS Safety Report 11145898 (Version 2)
Quarter: 2015Q2

REPORT INFORMATION
  Report Type: Spontaneous
  Country: JP (occurrence: JP)
  Receive Date: 20150528
  Receipt Date: 20150603
  Transmission Date: 20150821
  Serious: Yes (Other)
  Sender: FDA-Public Use
  Company Number: JP-BAYER-2015-261136

PATIENT
  Age: 38 Year
  Sex: Female

DRUGS (4)
  1. ACETYLSALICYLIC ACID({=100 MG) [Suspect]
     Active Substance: ASPIRIN
     Dosage: UNK
     Route: 048
  2. UNFRACTIONATED HEPARIN [Concomitant]
     Active Substance: HEPARIN SODIUM
     Dosage: DAILY DOSE 20000 U
     Route: 041
  3. PREDNISOLONE. [Concomitant]
     Active Substance: PREDNISOLONE
     Dosage: DAILY DOSE 9 MG
     Route: 048
  4. TACROLIMUS. [Concomitant]
     Active Substance: TACROLIMUS
     Dosage: DAILY DOSE 2 MG
     Route: 048

REACTIONS (6)
  - Premature rupture of membranes [None]
  - Platelet count decreased [None]
  - Premature labour [None]
  - Breech presentation [None]
  - Systemic lupus erythematosus [None]
  - Maternal exposure timing unspecified [Recovered/Resolved]
